FAERS Safety Report 8849375 (Version 1)
Quarter: 2012Q4

REPORT INFORMATION
  Report Type: 
  Country: US (occurrence: None)
  Receive Date: 20121018
  Receipt Date: 20121018
  Transmission Date: 20130627
  Serious: Yes (Hospitalization)
  Sender: FDA-Public Use
  Company Number: None

PATIENT
  Sex: Female
  Weight: 67.7 kg

DRUGS (2)
  1. CARBOPLATIN [Suspect]
  2. PACLITAXEL (TAXOL) [Suspect]

REACTIONS (7)
  - Flank pain [None]
  - Dysuria [None]
  - Hydronephrosis [None]
  - Calculus ureteric [None]
  - Nephrolithiasis [None]
  - Uterine leiomyoma [None]
  - Diverticulitis [None]
